FAERS Safety Report 8297861-5 (Version None)
Quarter: 2012Q2

REPORT INFORMATION
  Report Type: 
  Country: None (occurrence: None)
  Receive Date: 20120419
  Receipt Date: 20120411
  Transmission Date: 20120825
  Serious: Yes (Other)
  Sender: FDA-Public Use
  Company Number: PHHY2011US64633

PATIENT
  Sex: Male

DRUGS (11)
  1. ZONEGRAN [Concomitant]
  2. MIRALAX [Concomitant]
     Route: 065
  3. VIGABATRIN [Concomitant]
  4. TOPAMAX [Concomitant]
     Route: 065
  5. AFINITOR [Suspect]
     Dosage: 5 MG
     Route: 048
  6. AFINITOR [Suspect]
     Route: 048
     Dates: start: 20110713
  7. PHENOBARBITAL TAB [Concomitant]
     Route: 065
  8. SABRIL [Concomitant]
     Route: 065
  9. TAURINE [Concomitant]
     Route: 065
  10. AFINITOR [Suspect]
     Indication: TUBEROUS SCLEROSIS
     Dosage: 2.5 MG, DAILY
     Route: 048
     Dates: start: 20110713
  11. VITAMIN B6 [Concomitant]
     Route: 065

REACTIONS (11)
  - INFANTILE SPASMS [None]
  - ELECTROLYTE IMBALANCE [None]
  - EAR INFECTION [None]
  - VOMITING [None]
  - RHINORRHOEA [None]
  - COMPLEX PARTIAL SEIZURES [None]
  - COMA [None]
  - CONVULSION [None]
  - SOMNOLENCE [None]
  - DIARRHOEA [None]
  - COUGH [None]
